FAERS Safety Report 4334473-X (Version None)
Quarter: 2004Q2

REPORT INFORMATION
  Report Type: 
  Country: None (occurrence: None)
  Receive Date: 20040405
  Receipt Date: 20040324
  Transmission Date: 20050107
  Serious: Yes (Hospitalization)
  Sender: FDA-Public Use
  Company Number: HQWYE095925MAR04

PATIENT
  Age: 58 Year
  Sex: Female
  Weight: 91.17 kg

DRUGS (7)
  1. RAPAMUNE [Suspect]
     Indication: PROPHYLAXIS AGAINST TRANSPLANT REJECTION
     Dosage: 2 MG 1X PER 1 DAY, ORAL
     Route: 048
  2. LOPRESSOR [Concomitant]
  3. PROCARDIA [Concomitant]
  4. PROTONIX [Concomitant]
  5. LANTUS [Concomitant]
  6. ASPIRIN [Concomitant]
  7. PLAVIX [Concomitant]

REACTIONS (4)
  - ASTHENIA [None]
  - CAROTID ARTERY DISEASE [None]
  - LETHARGY [None]
  - TRANSIENT ISCHAEMIC ATTACK [None]
